FAERS Safety Report 18021813 (Version 1)
Quarter: 2020Q3

REPORT INFORMATION
  Report Type: Report from Study
  Country: CA (occurrence: CA)
  Receive Date: 20200714
  Receipt Date: 20200714
  Transmission Date: 20201103
  Serious: No
  Sender: FDA-Public Use
  Company Number: CA-TOLMAR, INC.-20CA021927

PATIENT
  Age: 85 Year
  Sex: Male

DRUGS (2)
  1. ELIGARD [Suspect]
     Active Substance: LEUPROLIDE ACETATE
     Dosage: 45 MG, Q 6 MONTH
     Route: 058
     Dates: start: 20180522
  2. ELIGARD [Suspect]
     Active Substance: LEUPROLIDE ACETATE
     Indication: PROSTATE CANCER
     Dosage: 45 MG, Q 6 MONTH
     Route: 058
     Dates: start: 20191228

REACTIONS (5)
  - Prostatic specific antigen abnormal [Unknown]
  - Injection site pain [Unknown]
  - Intentional dose omission [Unknown]
  - Injection site bruising [Unknown]
  - Injection site mass [Unknown]

NARRATIVE: CASE EVENT DATE: 20191228
